FAERS Safety Report 9322913 (Version 5)
Quarter: 2014Q1

REPORT INFORMATION
  Report Type: Spontaneous
  Country: US (occurrence: US)
  Receive Date: 20130601
  Receipt Date: 20140214
  Transmission Date: 20141002
  Serious: Yes (Hospitalization, Other)
  Sender: FDA-Public Use
  Company Number: US-ASTRAZENECA-2013SE38622

PATIENT
  Age: 41 Year
  Sex: Female
  Weight: 49.9 kg

DRUGS (17)
  1. NEXIUM [Suspect]
     Indication: GASTROOESOPHAGEAL REFLUX DISEASE
     Route: 048
     Dates: start: 2007
  2. NEXIUM [Suspect]
     Indication: GASTROOESOPHAGEAL REFLUX DISEASE
     Route: 048
     Dates: start: 2008, end: 2010
  3. NEXIUM [Suspect]
     Indication: GASTROOESOPHAGEAL REFLUX DISEASE
     Route: 048
     Dates: start: 20091211
  4. PEPCID [Concomitant]
     Indication: GASTROOESOPHAGEAL REFLUX DISEASE
     Dosage: AS NEEDED
     Dates: start: 2008, end: 2010
  5. ROLAIDS [Concomitant]
     Indication: GASTROOESOPHAGEAL REFLUX DISEASE
     Dosage: TAKEN AS NEEDED
     Dates: start: 2008, end: 2010
  6. WELLBUTRIN [Concomitant]
     Indication: DEPRESSION
  7. CYMBALTA [Concomitant]
     Indication: PAIN
  8. POTASSIUM [Concomitant]
  9. MAGNESIUM [Concomitant]
  10. VYTORIN [Concomitant]
     Indication: BLOOD CHOLESTEROL INCREASED
  11. IMITREX [Concomitant]
     Indication: MIGRAINE
  12. ESTRADIOL [Concomitant]
  13. ESTROGEN [Concomitant]
     Dates: start: 20061201
  14. METHYLPREDNISOLON [Concomitant]
  15. TUMS [Concomitant]
  16. CORTISONE [Concomitant]
  17. HYDROCODONE [Concomitant]

REACTIONS (20)
  - Osteoporosis [Unknown]
  - Cervical radiculopathy [Unknown]
  - Intervertebral disc degeneration [Unknown]
  - Breast disorder [Unknown]
  - Uterine disorder [Unknown]
  - Wrist fracture [Unknown]
  - Radius fracture [Unknown]
  - Bone disorder [Unknown]
  - Tooth disorder [Unknown]
  - Sleep disorder [Unknown]
  - Road traffic accident [Unknown]
  - Weight increased [Unknown]
  - Spinal osteoarthritis [Unknown]
  - Cervical spinal stenosis [Unknown]
  - Local swelling [Unknown]
  - Emotional distress [Unknown]
  - Fall [Unknown]
  - Arthralgia [Unknown]
  - Muscular weakness [Unknown]
  - Depression [Unknown]
